FAERS Safety Report 13269994 (Version 3)
Quarter: 2017Q2

REPORT INFORMATION
  Report Type: Report from Study
  Country: US (occurrence: CA)
  Receive Date: 20170224
  Receipt Date: 20170424
  Transmission Date: 20170830
  Serious: Yes (Other)
  Sender: FDA-Public Use
  Company Number: US-SUNOVION-2017SUN000781

PATIENT
  Age: 54 Year
  Sex: Female

DRUGS (15)
  1. XOLAIR [Suspect]
     Active Substance: OMALIZUMAB
     Dosage: UNK
     Route: 058
     Dates: start: 20160513
  2. SALBUTAMOL [Concomitant]
     Active Substance: ALBUTEROL
  3. XOLAIR [Suspect]
     Active Substance: OMALIZUMAB
     Indication: ASTHMA
     Dosage: 375 MG, BIW
     Route: 058
     Dates: start: 20150717
  4. XOLAIR [Suspect]
     Active Substance: OMALIZUMAB
     Dosage: UNK
     Route: 058
     Dates: start: 20161208
  5. XOLAIR [Suspect]
     Active Substance: OMALIZUMAB
     Dosage: UNK
     Route: 058
     Dates: start: 20170131
  6. CIPRALEX [Concomitant]
     Active Substance: ESCITALOPRAM OXALATE
  7. CLONAZEPAM. [Concomitant]
     Active Substance: CLONAZEPAM
  8. VENTOLIN [Concomitant]
     Active Substance: ALBUTEROL SULFATE
  9. DOMPERIDONE [Concomitant]
     Active Substance: DOMPERIDONE
  10. XOLAIR [Suspect]
     Active Substance: OMALIZUMAB
     Dosage: 375 MG, BIW
     Route: 058
     Dates: start: 20161004
  11. TECTA [Concomitant]
     Active Substance: PANTOPRAZOLE MAGNESIUM
  12. OMNARIS [Concomitant]
     Active Substance: CICLESONIDE
  13. GLYCOPYRROLATE. [Suspect]
     Active Substance: GLYCOPYRROLATE
     Indication: ASTHMA
     Dosage: 1 DF (50UG), QD (1 PUFF DAILY)
     Route: 055
  14. XOLAIR [Suspect]
     Active Substance: OMALIZUMAB
     Dosage: UNK
     Dates: start: 20170328
  15. ZENHALE [Concomitant]
     Active Substance: FORMOTEROL FUMARATE\MOMETASONE FUROATE
     Dosage: 200/5 UG

REACTIONS (24)
  - Headache [Unknown]
  - Allergy to animal [Unknown]
  - Feeling abnormal [Unknown]
  - Dyspnoea [Not Recovered/Not Resolved]
  - Malaise [Unknown]
  - Viral infection [Unknown]
  - Blood immunoglobulin E increased [Unknown]
  - Viral upper respiratory tract infection [Unknown]
  - Pneumonia aspiration [Unknown]
  - Lower respiratory tract infection [Unknown]
  - Asthma [Unknown]
  - Mite allergy [Unknown]
  - Migraine [Unknown]
  - Fatigue [Unknown]
  - Aspiration [Unknown]
  - Product use issue [Unknown]
  - Diverticulitis [Unknown]
  - Bronchitis [Unknown]
  - Wheezing [Unknown]
  - Hypersensitivity [Unknown]
  - Hiatus hernia [Unknown]
  - Abdominal pain [Unknown]
  - Seasonal allergy [Unknown]
  - Rhinorrhoea [Unknown]

NARRATIVE: CASE EVENT DATE: 201411
